FAERS Safety Report 8062008-7 (Version None)
Quarter: 2012Q1

REPORT INFORMATION
  Report Type: 
  Country: None (occurrence: None)
  Receive Date: 20120117
  Receipt Date: 20120104
  Transmission Date: 20120608
  Serious: Yes (Death, Other)
  Sender: FDA-Public Use
  Company Number: UTC-013613

PATIENT
  Age: 61 Year
  Sex: Male
  Weight: 77.7 kg

DRUGS (4)
  1. VIAGRA [Concomitant]
  2. TYVASO [Suspect]
     Indication: COR PULMONALE CHRONIC
     Dosage: 18-54 MICROGRAMS (4 IN 1 D), INHALATION
     Route: 055
     Dates: start: 20110621, end: 20111001
  3. DIURETICS (DIURETICS) [Concomitant]
  4. TRACLEER [Concomitant]

REACTIONS (2)
  - METASTATIC BRONCHIAL CARCINOMA [None]
  - RESPIRATORY FAILURE [None]
